FAERS Safety Report 4325283-8 (Version None)
Quarter: 2004Q1

REPORT INFORMATION
  Report Type: 
  Country: None (occurrence: None)
  Receive Date: 20040324
  Receipt Date: 20040312
  Transmission Date: 20041129
  Serious: Yes (Other)
  Sender: FDA-Public Use
  Company Number: 205263

PATIENT
  Age: 65 Year
  Sex: Female

DRUGS (8)
  1. MABTHERA (RITUXIMAB) CONC FOR SOLUTION FOR INFUSION [Suspect]
     Indication: LYMPHOMA
     Dosage: INTRAVENOUS
     Route: 042
  2. CORTICOSTEROID NOS [Concomitant]
  3. POLARAMINE [Concomitant]
  4. CYCLOPHOSPHAMIDE [Concomitant]
  5. DOXORUBICIN HCL [Concomitant]
  6. VINCRISTINE [Concomitant]
  7. PREDNISONE [Concomitant]
  8. PROPRANOLOL HCL [Concomitant]

REACTIONS (2)
  - CHEST PAIN [None]
  - RESPIRATORY ARREST [None]
